FAERS Safety Report 7416465-7 (Version None)
Quarter: 2011Q2

REPORT INFORMATION
  Report Type: 
  Country: None (occurrence: None)
  Receive Date: 20110414
  Receipt Date: 20110224
  Transmission Date: 20111010
  Serious: Yes (Death, Other)
  Sender: FDA-Public Use
  Company Number: US-BAYER-201016701NA

PATIENT
  Age: 80 Year
  Sex: Male
  Weight: 81.633 kg

DRUGS (24)
  1. VERSED [Concomitant]
     Dosage: UNK
     Route: 042
     Dates: start: 20051223
  2. ZOFRAN [Concomitant]
     Dosage: UNK
     Route: 042
     Dates: start: 20051223
  3. DOPAMINE HCL [Concomitant]
     Dosage: UNK
     Route: 042
     Dates: start: 20051223
  4. ALDACTONE [Concomitant]
     Route: 048
  5. ACETYLSALICYLIC ACID SRT [Concomitant]
     Route: 048
  6. SIMVASTATIN [Concomitant]
     Route: 048
  7. LASIX [Concomitant]
     Route: 048
  8. HEPARIN [Concomitant]
     Dosage: UNK
     Route: 042
     Dates: start: 20051223
  9. PEPCID [Concomitant]
     Dosage: UNK
     Route: 042
     Dates: start: 20051223
  10. PROPOFOL [Concomitant]
     Dosage: UNK
     Route: 042
     Dates: start: 20051223
  11. EPHEDRINE [Concomitant]
     Dosage: UNK
     Route: 042
     Dates: start: 20051223
  12. NOREPINEPHRINE BITARTRATE [Concomitant]
     Dosage: UNK
     Route: 042
     Dates: start: 20051223
  13. SODIUM NITROPRUSSIDE [Concomitant]
     Route: 048
  14. LISINOPRIL [Concomitant]
     Route: 048
  15. LASIX [Concomitant]
     Dosage: UNK
     Route: 042
     Dates: start: 20051223
  16. ANCEF [Concomitant]
     Dosage: UNK
     Route: 042
     Dates: start: 20051223
  17. ALBUMIN (HUMAN) [Concomitant]
     Dosage: 1000 UNITS UNSPECIFIED
     Route: 042
     Dates: start: 20051223
  18. TRASYLOL [Suspect]
     Indication: AORTIC SURGERY
     Route: 042
     Dates: start: 20051223
  19. RED BLOOD CELLS [Concomitant]
     Dosage: 3 U, UNK
     Route: 042
     Dates: start: 20051223
  20. COREG [Concomitant]
     Route: 048
  21. FENTANYL [Concomitant]
     Dosage: UNK
     Route: 042
     Dates: start: 20051223
  22. LIDOCAINE [Concomitant]
     Dosage: UNK
     Route: 042
     Dates: start: 20051223
  23. ESMOLOL [Concomitant]
     Dosage: UNK
     Route: 042
     Dates: start: 20051223
  24. PROTAMINE SULFATE [Concomitant]
     Dosage: UNK
     Route: 042
     Dates: start: 20051223

REACTIONS (4)
  - RENAL FAILURE [None]
  - PAIN [None]
  - INJURY [None]
  - DEATH [None]
